FAERS Safety Report 14503732 (Version 2)
Quarter: 2018Q2

REPORT INFORMATION
  Report Type: Spontaneous
  Country: US (occurrence: US)
  Receive Date: 20180208
  Receipt Date: 20180424
  Transmission Date: 20180711
  Serious: Yes (Hospitalization, Other)
  Sender: FDA-Public Use
  Company Number: US-GLAXOSMITHKLINE-US2018019848

PATIENT
  Sex: Female

DRUGS (5)
  1. ASPIRIN + CAFFEINE + SALICYLAMIDE [Concomitant]
     Active Substance: ASPIRIN\CAFFEINE\SALICYLAMIDE
  2. BENLYSTA [Suspect]
     Active Substance: BELIMUMAB
     Indication: SYSTEMIC LUPUS ERYTHEMATOSUS
     Dosage: UNK UNK, CYC
     Route: 041
     Dates: start: 201611, end: 201709
  3. BENLYSTA [Suspect]
     Active Substance: BELIMUMAB
     Indication: SYSTEMIC LUPUS ERYTHEMATOSUS
     Dosage: 200 MG, WE
     Route: 042
     Dates: start: 20180204
  4. PLAVIX [Concomitant]
     Active Substance: CLOPIDOGREL BISULFATE
  5. BENLYSTA [Suspect]
     Active Substance: BELIMUMAB
     Dosage: 200 MG, WE
     Route: 042

REACTIONS (11)
  - Pneumonia [Recovered/Resolved]
  - Asthenia [Unknown]
  - Pericarditis [Recovered/Resolved]
  - Device use error [Unknown]
  - Malaise [Unknown]
  - Injection site pain [Recovered/Resolved]
  - Memory impairment [Unknown]
  - Laboratory test abnormal [Unknown]
  - Nervousness [Not Recovered/Not Resolved]
  - Weight decreased [Recovering/Resolving]
  - Myocardial infarction [Recovered/Resolved]
